FAERS Safety Report 12686683 (Version 1)
Quarter: 2016Q3

REPORT INFORMATION
  Report Type: Spontaneous
  Country: US (occurrence: US)
  Receive Date: 20160825
  Receipt Date: 20160825
  Transmission Date: 20161109
  Serious: No
  Sender: FDA-Public Use
  Company Number: US-ELI_LILLY_AND_COMPANY-US201608006097

PATIENT
  Sex: Male

DRUGS (1)
  1. TALTZ [Suspect]
     Active Substance: IXEKIZUMAB
     Indication: PSORIASIS
     Dosage: 160 MG, SINGLE
     Dates: start: 20160727

REACTIONS (5)
  - Abdominal pain [Unknown]
  - Injection site erythema [Unknown]
  - Pyrexia [Unknown]
  - Chills [Unknown]
  - Injection site pain [Unknown]

NARRATIVE: CASE EVENT DATE: 20160806
